FAERS Safety Report 14204599 (Version 1)
Quarter: 2017Q4

REPORT INFORMATION
  Report Type: Spontaneous
  Country: US (occurrence: None)
  Receive Date: 20171118
  Receipt Date: 20171118
  Transmission Date: 20180321
  Serious: No
  Sender: FDA-Public Use
  Company Number: None

PATIENT
  Age: 66 Year
  Sex: Male

DRUGS (1)
  1. AMOXICILLIN/CLAVULANIC ACID [Suspect]
     Active Substance: AMOXICILLIN\CLAVULANIC ACID
     Dates: start: 20140110, end: 20140116

REACTIONS (5)
  - Drug-induced liver injury [None]
  - Chromaturia [None]
  - Jaundice [None]
  - Cholelithiasis [None]
  - Abdominal pain upper [None]

NARRATIVE: CASE EVENT DATE: 20140117
